FAERS Safety Report 19668625 (Version 3)
Quarter: 2021Q3

REPORT INFORMATION
  Report Type: Spontaneous
  Country: IN (occurrence: IN)
  Receive Date: 20210806
  Receipt Date: 20210901
  Transmission Date: 20211014
  Serious: Yes (Other)
  Sender: FDA-Public Use
  Company Number: IN-PFIZER INC-2021724560

PATIENT
  Age: 56 Year
  Sex: Female

DRUGS (2)
  1. FEMPRO [Concomitant]
     Active Substance: LETROZOLE
     Dosage: 2.5, 1X/DAY
  2. PALBACE [Suspect]
     Active Substance: PALBOCICLIB
     Indication: INVASIVE DUCTAL BREAST CARCINOMA
     Dosage: 125 MG, 1X/DAY
     Route: 048
     Dates: start: 20210531

REACTIONS (4)
  - Thrombosis [Unknown]
  - Aphasia [Unknown]
  - Cerebral thrombosis [Unknown]
  - Pneumothorax [Unknown]
